FAERS Safety Report 12459045 (Version 1)
Quarter: 2016Q2

REPORT INFORMATION
  Report Type: Spontaneous
  Country: GB (occurrence: GB)
  Receive Date: 20160613
  Receipt Date: 20160613
  Transmission Date: 20160815
  Serious: Yes (Other)
  Sender: FDA-Public Use
  Company Number: GB-009507513-1606GBR003376

PATIENT
  Age: 28 Year
  Sex: Female

DRUGS (1)
  1. NEXPLANON [Suspect]
     Active Substance: ETONOGESTREL
     Indication: CHEMICAL CONTRACEPTION
     Dosage: 68 MICROGRAM, UNK
     Route: 059
     Dates: start: 20150318, end: 20160513

REACTIONS (4)
  - Pregnancy with implant contraceptive [Unknown]
  - Amenorrhoea [Unknown]
  - Device failure [Unknown]
  - Abortion spontaneous [Unknown]

NARRATIVE: CASE EVENT DATE: 20160506
